FAERS Safety Report 8111781-8 (Version None)
Quarter: 2012Q1

REPORT INFORMATION
  Report Type: 
  Country: None (occurrence: None)
  Receive Date: 20120131
  Receipt Date: 20120124
  Transmission Date: 20120608
  Serious: Yes (Death, Life-Threatening, Hospitalization)
  Sender: FDA-Public Use
  Company Number: 2011PL000145

PATIENT
  Age: 71 Year
  Sex: Female

DRUGS (1)
  1. PROLEUKIN [Suspect]
     Indication: OESOPHAGEAL CARCINOMA
     Dosage: 31.6 MIU; 1X;
     Dates: start: 20110819, end: 20110819

REACTIONS (18)
  - HYPOTENSION [None]
  - MENTAL STATUS CHANGES [None]
  - SOMNOLENCE [None]
  - PLEURAL EFFUSION [None]
  - HAEMODIALYSIS [None]
  - VENA CAVA THROMBOSIS [None]
  - OEDEMA [None]
  - BLOOD CREATININE INCREASED [None]
  - RENAL FAILURE [None]
  - CORNEAL REFLEX DECREASED [None]
  - NEOPLASM PROGRESSION [None]
  - TREMOR [None]
  - INFECTION [None]
  - DIFFUSE AXONAL INJURY [None]
  - OESOPHAGEAL CARCINOMA [None]
  - UNRESPONSIVE TO STIMULI [None]
  - CEREBRAL INFARCTION [None]
  - USE OF ACCESSORY RESPIRATORY MUSCLES [None]
